FAERS Safety Report 9116119 (Version 1)
Quarter: 2013Q1

REPORT INFORMATION
  Report Type: Spontaneous
  Country: US (occurrence: US)
  Receive Date: 20130225
  Receipt Date: 20130225
  Transmission Date: 20140127
  Serious: Yes (Other)
  Sender: FDA-Public Use
  Company Number: US-TEVA-387466USA

PATIENT
  Age: 58 Year
  Sex: 0

DRUGS (2)
  1. RIBAVIRIN [Suspect]
     Indication: CHRONIC HEPATITIS
     Route: 065
  2. INTERFERON [Suspect]
     Indication: CHRONIC HEPATITIS
     Route: 065

REACTIONS (1)
  - Cryoglobulinaemia [Recovered/Resolved]
